FAERS Safety Report 10204463 (Version 1)
Quarter: 2014Q2

REPORT INFORMATION
  Report Type: Spontaneous
  Country: US (occurrence: US)
  Receive Date: 20140529
  Receipt Date: 20140529
  Transmission Date: 20141212
  Serious: No
  Sender: FDA-Public Use
  Company Number: US-SANOFI-AVENTIS-2013SA063164

PATIENT
  Age: 66 Year
  Sex: Female

DRUGS (3)
  1. SOLOSTAR [Suspect]
     Indication: TYPE 2 DIABETES MELLITUS
     Dates: start: 201301
  2. LANTUS SOLOSTAR [Suspect]
     Indication: TYPE 2 DIABETES MELLITUS
     Dosage: DOSE: 50 AM, 50 PM
     Route: 058
     Dates: start: 201301
  3. HUMALOG [Suspect]

REACTIONS (5)
  - Malaise [Unknown]
  - Thinking abnormal [Unknown]
  - Weight decreased [Unknown]
  - Injection site scar [Unknown]
  - Blood glucose increased [Recovered/Resolved]
